FAERS Safety Report 21158386 (Version 1)
Quarter: 2022Q3

REPORT INFORMATION
  Report Type: Spontaneous
  Country: US (occurrence: US)
  Receive Date: 20220801
  Receipt Date: 20220801
  Transmission Date: 20221026
  Serious: No
  Sender: FDA-Public Use
  Company Number: US-GILEAD-2022-0591928

PATIENT
  Sex: Female

DRUGS (3)
  1. VEMLIDY [Suspect]
     Active Substance: TENOFOVIR ALAFENAMIDE FUMARATE
     Indication: Chronic hepatitis B
     Dosage: 1 DOSAGE FORM, QD
     Route: 048
  2. CHOLECALCIFEROL [Concomitant]
     Active Substance: CHOLECALCIFEROL
  3. SRONYX [Concomitant]
     Active Substance: ETHINYL ESTRADIOL\LEVONORGESTREL

REACTIONS (2)
  - Product dose omission in error [Recovered/Resolved]
  - Abdominal pain [Recovered/Resolved]
